FAERS Safety Report 9399693 (Version 5)
Quarter: 2013Q4

REPORT INFORMATION
  Report Type: Report from Study
  Country: US (occurrence: US)
  Receive Date: 20130715
  Receipt Date: 20131016
  Transmission Date: 20140711
  Serious: Yes (Hospitalization)
  Sender: FDA-Public Use
  Company Number: US-JNJFOC-20130706593

PATIENT
  Age: 50 Year
  Sex: Male
  Weight: 108.86 kg

DRUGS (21)
  1. USTEKINUMAB [Suspect]
     Indication: PSORIASIS
     Route: 058
     Dates: start: 20130506
  2. USTEKINUMAB [Suspect]
     Indication: PSORIASIS
     Route: 058
     Dates: start: 20110701
  3. LISINOPRIL [Concomitant]
     Dosage: 1/4 PILL
     Route: 048
  4. RITALIN [Concomitant]
     Route: 048
  5. BUPROPION HCL [Concomitant]
     Dosage: DO NOT CRUSH OR CHEW
     Route: 048
  6. KOMBIGLYZE [Concomitant]
     Route: 065
  7. CRESTOR [Concomitant]
     Route: 065
  8. TRICOR [Concomitant]
     Route: 048
  9. ROPINIROLE [Concomitant]
     Route: 065
  10. PROZAC [Concomitant]
     Route: 065
  11. FLOMAX [Concomitant]
     Dosage: EACH EVENING AT BED TIME
     Route: 048
  12. ISOPTO TEARS [Concomitant]
     Dosage: 0.5 %
     Route: 047
  13. DILAUDID [Concomitant]
     Route: 048
  14. LACTOBACILLUS [Concomitant]
     Route: 048
  15. CIPRO [Concomitant]
     Route: 048
     Dates: start: 20130527
  16. MIRALAX [Concomitant]
     Dosage: AS NEEDED DAILY AT 10 AM
     Route: 048
  17. SENOKOT-S [Concomitant]
     Dosage: EACH EVENING AT BED TIME
     Route: 048
  18. TYLENOL [Concomitant]
     Route: 048
  19. DITROPAN [Concomitant]
     Route: 048
  20. PYRIDIUM [Concomitant]
     Indication: MUSCLE SPASMS
     Route: 065
  21. NITROFURANTOIN [Concomitant]
     Route: 065

REACTIONS (5)
  - Urinary tract infection [Recovered/Resolved]
  - Platelet count decreased [Unknown]
  - Nephrolithiasis [Unknown]
  - Catheterisation cardiac [Unknown]
  - Constipation [Recovered/Resolved]
